FAERS Safety Report 13683815 (Version 1)
Quarter: 2017Q2

REPORT INFORMATION
  Report Type: Spontaneous
  Country: US (occurrence: US)
  Receive Date: 20170623
  Receipt Date: 20170623
  Transmission Date: 20170830
  Serious: No
  Sender: FDA-Public Use
  Company Number: US-IPSEN BIOPHARMACEUTICALS, INC.-2016-10369

PATIENT
  Age: 61 Year
  Sex: Female
  Weight: 49.9 kg

DRUGS (6)
  1. DYSPORT [Suspect]
     Active Substance: ABOBOTULINUMTOXINA
     Indication: OFF LABEL USE
  2. DOXYCYCLINE. [Concomitant]
     Active Substance: DOXYCYCLINE
     Indication: ACNE
  3. DYSPORT [Suspect]
     Active Substance: ABOBOTULINUMTOXINA
     Indication: SKIN WRINKLING
     Dosage: 50 UNITS
     Route: 065
     Dates: start: 20161128, end: 20161128
  4. RESTYLANE L [Suspect]
     Active Substance: HYALURONIC ACID\LIDOCAINE
     Indication: SKIN COSMETIC PROCEDURE
     Dates: start: 20161128
  5. VALTREX [Concomitant]
     Active Substance: VALACYCLOVIR HYDROCHLORIDE
     Indication: ORAL HERPES
  6. DYSPORT [Suspect]
     Active Substance: ABOBOTULINUMTOXINA
     Indication: SKIN WRINKLING

REACTIONS (6)
  - Off label use [Unknown]
  - Injection site urticaria [Recovering/Resolving]
  - Injection site swelling [Recovering/Resolving]
  - Injection site mass [Recovering/Resolving]
  - Injection site warmth [Recovering/Resolving]
  - Injection site erythema [Recovering/Resolving]

NARRATIVE: CASE EVENT DATE: 20161128
